FAERS Safety Report 10768181 (Version 1)
Quarter: 2015Q1

REPORT INFORMATION
  Report Type: Spontaneous
  Country: US (occurrence: US)
  Receive Date: 20150206
  Receipt Date: 20150206
  Transmission Date: 20150721
  Serious: No
  Sender: FDA-Public Use
  Company Number: US-ASTRAZENECA-2015SE11612

PATIENT
  Age: 75 Year
  Sex: Female
  Weight: 75 kg

DRUGS (7)
  1. NEXIUM 24HR [Suspect]
     Active Substance: ESOMEPRAZOLE MAGNESIUM
     Indication: GASTROOESOPHAGEAL REFLUX DISEASE
     Route: 048
     Dates: start: 20150124
  2. ASPIRIN ^BAYER^ [Concomitant]
     Active Substance: ASPIRIN
     Indication: CARDIAC DISORDER
  3. BENICAR [Concomitant]
     Active Substance: OLMESARTAN MEDOXOMIL
     Indication: HYPERTENSION
  4. PREMARIN [Concomitant]
     Active Substance: ESTROGENS, CONJUGATED
  5. METOPROLOL [Concomitant]
     Active Substance: METOPROLOL
     Indication: HYPERTENSION
  6. HYDROCHLOROTHIAZIDE. [Concomitant]
     Active Substance: HYDROCHLOROTHIAZIDE
     Indication: HYPERTENSION
  7. OXYBUTYNIN [Concomitant]
     Active Substance: OXYBUTYNIN
     Indication: BLADDER DISORDER

REACTIONS (4)
  - Eructation [Not Recovered/Not Resolved]
  - Regurgitation [Unknown]
  - Foreign body [Unknown]
  - Intentional product misuse [Unknown]

NARRATIVE: CASE EVENT DATE: 20150124
